FAERS Safety Report 6158962-0 (Version None)
Quarter: 2009Q2

REPORT INFORMATION
  Report Type: 
  Country: None (occurrence: None)
  Receive Date: 20090417
  Receipt Date: 20090407
  Transmission Date: 20091009
  Serious: Yes (Hospitalization)
  Sender: FDA-Public Use
  Company Number: FR-PFIZER INC-2008066748

PATIENT

DRUGS (5)
  1. SOLU-MEDROL [Suspect]
     Route: 042
     Dates: start: 20080703
  2. TAXOL [Suspect]
     Dates: start: 20080710
  3. DURAGESIC-100 [Suspect]
     Dosage: 0.3333 DF
     Route: 062
     Dates: start: 20080708
  4. ZOLPIDEM TARTRATE [Concomitant]
     Dates: start: 20080703
  5. AMPHOTERICIN B [Concomitant]
     Dates: start: 20080707, end: 20080713

REACTIONS (1)
  - MYOSITIS [None]
